FAERS Safety Report 11425783 (Version 1)
Quarter: 2015Q3

REPORT INFORMATION
  Report Type: Spontaneous
  Country: US (occurrence: US)
  Receive Date: 20150821
  Receipt Date: 20150821
  Transmission Date: 20151125
  Serious: No
  Sender: FDA-Public Use
  Company Number: US-ELI_LILLY_AND_COMPANY-US201304000629

PATIENT
  Sex: Male

DRUGS (2)
  1. CIALIS [Suspect]
     Active Substance: TADALAFIL
     Indication: ERECTILE DYSFUNCTION
     Dosage: 20 MG, UNKNOWN
     Route: 048
  2. ALCOHOL. [Concomitant]
     Active Substance: ALCOHOL

REACTIONS (4)
  - Wrong technique in product usage process [Unknown]
  - Influenza like illness [Unknown]
  - Insomnia [Unknown]
  - Myalgia [Unknown]

NARRATIVE: CASE EVENT DATE: 20130328
